FAERS Safety Report 4379743-4 (Version None)
Quarter: 2004Q2

REPORT INFORMATION
  Report Type: 
  Country: None (occurrence: None)
  Receive Date: 20040617
  Receipt Date: 20040607
  Transmission Date: 20050107
  Serious: Yes (Hospitalization)
  Sender: FDA-Public Use
  Company Number: FR-GLAXOSMITHKLINE-B0335056A

PATIENT
  Age: 36 Year
  Sex: Male

DRUGS (6)
  1. AUGMENTIN [Suspect]
     Route: 042
     Dates: start: 20040314, end: 20040316
  2. AMOXICILLIN [Suspect]
     Dosage: 2G THREE TIMES PER DAY
     Route: 042
     Dates: start: 20040325, end: 20040419
  3. OXACILLIN [Suspect]
     Route: 042
     Dates: start: 20040317, end: 20040325
  4. IMOVANE [Suspect]
     Route: 048
     Dates: start: 20040314, end: 20040505
  5. MOPRAL [Suspect]
     Dosage: 20MG PER DAY
     Route: 048
     Dates: start: 20040314, end: 20040505
  6. METHADONE HCL [Concomitant]
     Route: 048

REACTIONS (5)
  - BLOOD ALKALINE PHOSPHATASE INCREASED [None]
  - CYTOLYTIC HEPATITIS [None]
  - EOSINOPHILIA [None]
  - GAMMA-GLUTAMYLTRANSFERASE INCREASED [None]
  - TRANSAMINASES INCREASED [None]
